FAERS Safety Report 10374208 (Version 2)
Quarter: 2014Q3

REPORT INFORMATION
  Report Type: Spontaneous
  Country: FR (occurrence: FR)
  Receive Date: 20140811
  Receipt Date: 20140811
  Transmission Date: 20150326
  Serious: Yes (Other)
  Sender: FDA-Public Use
  Company Number: FR-PFIZER INC-2014201488

PATIENT
  Age: 37 Year
  Sex: Male

DRUGS (6)
  1. CRESTOR [Concomitant]
     Active Substance: ROSUVASTATIN CALCIUM
     Dosage: 10 MG, DAILY
  2. AERIUS [Concomitant]
     Active Substance: DESLORATADINE
     Dosage: 5 MG, DAILY
  3. SINGULAIR [Concomitant]
     Active Substance: MONTELUKAST SODIUM
     Dosage: 10 MG, DAILY
  4. LYRICA [Concomitant]
     Active Substance: PREGABALIN
     Dosage: 150 MG, 3X/DAY
  5. BOSULIF [Suspect]
     Active Substance: BOSUTINIB MONOHYDRATE
     Indication: CHRONIC MYELOID LEUKAEMIA
     Dosage: 500 MG, DAILY
     Route: 048
     Dates: start: 20140113
  6. BOSULIF [Suspect]
     Active Substance: BOSUTINIB MONOHYDRATE
     Dosage: 400 MG, UNK
     Route: 048
     Dates: start: 20140415, end: 20140703

REACTIONS (3)
  - Disease progression [Unknown]
  - Chronic myeloid leukaemia [Unknown]
  - Plantar fasciitis [Not Recovered/Not Resolved]

NARRATIVE: CASE EVENT DATE: 20140305
